FAERS Safety Report 14520027 (Version 5)
Quarter: 2019Q1

REPORT INFORMATION
  Report Type: Spontaneous
  Country: US (occurrence: US)
  Receive Date: 20180212
  Receipt Date: 20190211
  Transmission Date: 20190417
  Serious: No
  Sender: FDA-Public Use
  Company Number: US-INCYTE CORPORATION-2018IN000931

PATIENT

DRUGS (15)
  1. LEVOTHYROXINE. [Concomitant]
     Active Substance: LEVOTHYROXINE
     Indication: PRODUCT USED FOR UNKNOWN INDICATION
     Dosage: 88 ?G, QD
     Route: 065
  2. JAKAFI [Suspect]
     Active Substance: RUXOLITINIB
     Dosage: 10 MG, BID
     Route: 048
     Dates: start: 201305
  3. HYDROXYUREA. [Suspect]
     Active Substance: HYDROXYUREA
     Indication: PRODUCT USED FOR UNKNOWN INDICATION
     Route: 065
  4. ASPIRIN                            /00002701/ [Concomitant]
     Active Substance: ASPIRIN
     Indication: PRODUCT USED FOR UNKNOWN INDICATION
     Dosage: 81 MG, QD
     Route: 065
  5. SYNTHROID [Concomitant]
     Active Substance: LEVOTHYROXINE SODIUM
     Indication: PRODUCT USED FOR UNKNOWN INDICATION
     Dosage: UNK
     Route: 065
  6. JAKAFI [Suspect]
     Active Substance: RUXOLITINIB
     Dosage: 10MG QAM ALTERNATING WITH 10MG BID
     Route: 048
  7. BIOTIN [Concomitant]
     Active Substance: BIOTIN
     Indication: PRODUCT USED FOR UNKNOWN INDICATION
     Dosage: 10000 ?G, QD
     Route: 065
  8. JAKAFI [Suspect]
     Active Substance: RUXOLITINIB
     Indication: MYELOFIBROSIS
     Dosage: ALTERNATE 1-2 TABS EVERY OTHER DAY
     Route: 048
     Dates: start: 20130510
  9. JAKAFI [Suspect]
     Active Substance: RUXOLITINIB
     Dosage: TAKING ONE EVERY MORNING AND ONE EVERY OTHER EVENING
     Route: 065
  10. LOVASTATIN. [Concomitant]
     Active Substance: LOVASTATIN
     Indication: PRODUCT USED FOR UNKNOWN INDICATION
     Dosage: 40 MG, QD
     Route: 065
  11. MULTIVITAMIN                       /07504101/ [Concomitant]
     Active Substance: VITAMINS
     Indication: PRODUCT USED FOR UNKNOWN INDICATION
     Dosage: 1 DF, QD
     Route: 065
  12. JAKAFI [Suspect]
     Active Substance: RUXOLITINIB
     Dosage: 10 MG QD ALTERNATING WITH 10 MG BID
     Route: 048
  13. JAKAFI [Suspect]
     Active Substance: RUXOLITINIB
     Dosage: UNK
     Route: 048
     Dates: start: 201305
  14. JAKAFI [Suspect]
     Active Substance: RUXOLITINIB
     Dosage: 10 MG PO QD ALTERNATING 20 MG PO QD
     Route: 048
  15. METFORMIN [Suspect]
     Active Substance: METFORMIN HYDROCHLORIDE
     Indication: PRODUCT USED FOR UNKNOWN INDICATION
     Dosage: 500 MG, QD
     Route: 065

REACTIONS (13)
  - Road traffic accident [Unknown]
  - Dyspepsia [Unknown]
  - White blood cell count increased [Unknown]
  - Muscle spasms [Unknown]
  - Joint stiffness [Unknown]
  - Platelet count increased [Unknown]
  - Arthritis [Unknown]
  - Neutrophil count increased [Unknown]
  - Dizziness [Unknown]
  - Arthralgia [Unknown]
  - Alopecia [Unknown]
  - Decreased appetite [Unknown]
  - Myalgia [Unknown]

NARRATIVE: CASE EVENT DATE: 20180315
